FAERS Safety Report 11192849 (Version 1)
Quarter: 2015Q2

REPORT INFORMATION
  Report Type: Spontaneous
  Country: US (occurrence: US)
  Receive Date: 20150616
  Receipt Date: 20150616
  Transmission Date: 20150821
  Serious: Yes (Other)
  Sender: FDA-Public Use
  Company Number: US-PFIZER INC-2015197032

PATIENT

DRUGS (1)
  1. ZOLOFT [Suspect]
     Active Substance: SERTRALINE HYDROCHLORIDE
     Dosage: UNK
     Route: 050

REACTIONS (3)
  - Exposure via father [Unknown]
  - Deformity [Unknown]
  - Foetal chromosome abnormality [Unknown]

NARRATIVE: CASE EVENT DATE: 2000
